FAERS Safety Report 8195838-1 (Version None)
Quarter: 2012Q1

REPORT INFORMATION
  Report Type: 
  Country: None (occurrence: None)
  Receive Date: 20120308
  Receipt Date: 20120301
  Transmission Date: 20120608
  Serious: Yes (Other)
  Sender: FDA-Public Use
  Company Number: US-ABBOTT-12P-163-0910450-00

PATIENT
  Age: 65 Year
  Sex: Male

DRUGS (9)
  1. PROVENTIL [Concomitant]
     Indication: ASTHMA EXERCISE INDUCED
  2. DOXAZOSIN MESYLATE [Concomitant]
     Indication: HYPERTENSION
  3. VITAMIN D [Concomitant]
     Indication: VITAMIN SUPPLEMENTATION
  4. MULTI-VITAMIN [Concomitant]
     Indication: VITAMIN SUPPLEMENTATION
  5. CLARITIN [Concomitant]
     Indication: SEASONAL ALLERGY
  6. HUMIRA [Suspect]
     Indication: CROHN'S DISEASE
     Dates: start: 20111206
  7. BUPROPION HYDROCHLORIDE [Concomitant]
     Indication: DEPRESSION
  8. ATENOLOL [Concomitant]
     Indication: HYPERTENSION
  9. CIALIS [Concomitant]
     Indication: DEPRESSION
     Dosage: RARELY TAKES ENTIRE TABLET

REACTIONS (2)
  - LOOSE BODY IN JOINT [None]
  - ARTHRITIS [None]
